FAERS Safety Report 20481822 (Version 1)
Quarter: 2022Q1

REPORT INFORMATION
  Report Type: Report from Study
  Country: US (occurrence: US)
  Receive Date: 20220216
  Receipt Date: 20220216
  Transmission Date: 20220423
  Serious: Yes (Hospitalization)
  Sender: FDA-Public Use
  Company Number: US-UCBSA-2022006434

PATIENT
  Sex: Female

DRUGS (1)
  1. LACOSAMIDE [Suspect]
     Active Substance: LACOSAMIDE
     Indication: Product used for unknown indication
     Dosage: 200MG TWICE DAILY ALONG WITH 50MG

REACTIONS (3)
  - Brain neoplasm malignant [Not Recovered/Not Resolved]
  - Seizure [Not Recovered/Not Resolved]
  - Incorrect dose administered [Unknown]
